FAERS Safety Report 19031705 (Version 2)
Quarter: 2021Q2

REPORT INFORMATION
  Report Type: Spontaneous
  Country: ES (occurrence: ES)
  Receive Date: 20210319
  Receipt Date: 20210402
  Transmission Date: 20210717
  Serious: Yes (Other)
  Sender: FDA-Public Use
  Company Number: ES-AMGEN-ESPSP2021040278

PATIENT
  Age: 11 Year
  Sex: Female
  Weight: 25 kg

DRUGS (2)
  1. PLERIXAFOR [Concomitant]
     Active Substance: PLERIXAFOR
     Indication: HAEMATOPOIETIC STEM CELL MOBILISATION
     Dosage: 240 MICROGRAM/KILOGRAM
     Route: 065
  2. FILGRASTIM [Suspect]
     Active Substance: FILGRASTIM
     Indication: HAEMATOPOIETIC STEM CELL MOBILISATION
     Dosage: 12 MICROGRAM/KILOGRAM, BID (FOR 4 DAYS)
     Route: 065

REACTIONS (3)
  - Bone pain [Unknown]
  - Ewing^s sarcoma [Unknown]
  - Drug ineffective [Unknown]
